FAERS Safety Report 16568198 (Version 1)
Quarter: 2019Q3

REPORT INFORMATION
  Report Type: Spontaneous
  Country: US (occurrence: US)
  Receive Date: 20190712
  Receipt Date: 20190712
  Transmission Date: 20191004
  Serious: Yes (Other)
  Sender: FDA-Public Use
  Company Number: US-ASTELLAS-2019US028145

PATIENT
  Age: 77 Year
  Sex: Male
  Weight: 111 kg

DRUGS (2)
  1. TETROFOSMIN. [Concomitant]
     Active Substance: TETROFOSMIN
     Indication: PRODUCT USED FOR UNKNOWN INDICATION
     Dosage: UNK UNK, UNKNOWN FREQ.
     Route: 042
  2. LEXISCAN [Suspect]
     Active Substance: REGADENOSON
     Indication: CARDIAC STRESS TEST
     Route: 042

REACTIONS (3)
  - Dyspnoea [Not Recovered/Not Resolved]
  - Ventricular extrasystoles [Unknown]
  - Heart rate increased [Unknown]
